FAERS Safety Report 10994195 (Version 2)
Quarter: 2015Q2

REPORT INFORMATION
  Report Type: Spontaneous
  Country: US (occurrence: None)
  Receive Date: 20150403
  Receipt Date: 20150413
  Transmission Date: 20150821
  Serious: Yes (Hospitalization)
  Sender: FDA-Public Use
  Company Number: CIO15020179

PATIENT
  Age: 76 Year
  Sex: Female

DRUGS (6)
  1. THYROID PREPARATIONS [Concomitant]
     Active Substance: UNSPECIFIED INGREDIENT
  2. INSULIN [Concomitant]
     Active Substance: INSULIN NOS
  3. CARDIOVASCULAR SYSTEM DRUGS [Concomitant]
     Active Substance: UNSPECIFIED INGREDIENT
  4. UNSPECIFIED EYE MEDICINE [Concomitant]
  5. METAMUCIL THERAPY FOR REGULARITY [Suspect]
     Active Substance: PSYLLIUM HUSK
     Dosage: 1 TBSP, 1 /DAY, ORAL
     Route: 048
     Dates: end: 20150323
  6. SUGAR PILL [Concomitant]

REACTIONS (14)
  - Abdominal pain upper [None]
  - Asthenia [None]
  - Incorrect dose administered [None]
  - Constipation [None]
  - Abdominal discomfort [None]
  - Gastrooesophageal reflux disease [None]
  - Vomiting [None]
  - Malaise [None]
  - Nausea [None]
  - Drug ineffective [None]
  - Dizziness [None]
  - Defaecation urgency [None]
  - Dyspepsia [None]
  - Gait disturbance [None]

NARRATIVE: CASE EVENT DATE: 201503
